FAERS Safety Report 18850186 (Version 7)
Quarter: 2022Q3

REPORT INFORMATION
  Report Type: Report from Study
  Country: FR (occurrence: FR)
  Receive Date: 20210204
  Receipt Date: 20220802
  Transmission Date: 20221026
  Serious: Yes (Hospitalization, Other)
  Sender: FDA-Public Use
  Company Number: FR-BRISTOL-MYERS SQUIBB COMPANY-BMS-2021-009331

PATIENT
  Age: 66 Year
  Sex: Female
  Weight: 72 kg

DRUGS (25)
  1. IPILIMUMAB [Suspect]
     Active Substance: IPILIMUMAB
     Indication: Colorectal cancer metastatic
     Dosage: MOST RECENT DOSE OF 64 MG ADMINISTERED ON 30-DEC-2020
     Route: 042
     Dates: start: 20201028
  2. METRONIDAZOLE [Concomitant]
     Active Substance: METRONIDAZOLE
     Indication: Product used for unknown indication
     Dosage: UNK
     Route: 042
     Dates: start: 20210126, end: 20210201
  3. METRONIDAZOLE [Concomitant]
     Active Substance: METRONIDAZOLE
  4. METRONIDAZOLE [Concomitant]
     Active Substance: METRONIDAZOLE
  5. CEFTRIAXONE [Concomitant]
     Active Substance: CEFTRIAXONE
     Indication: Product used for unknown indication
     Dosage: UNK
     Route: 042
     Dates: start: 20210126, end: 20210201
  6. CEFTRIAXONE [Concomitant]
     Active Substance: CEFTRIAXONE
  7. CEFTRIAXONE [Concomitant]
     Active Substance: CEFTRIAXONE
  8. POTASSIUM CHLORIDE [Concomitant]
     Active Substance: POTASSIUM CHLORIDE
     Indication: Prophylaxis
     Route: 048
     Dates: start: 20210208, end: 2021
  9. OXYCODONE HYDROCHLORIDE [Concomitant]
     Active Substance: OXYCODONE HYDROCHLORIDE
     Indication: Prophylaxis
     Route: 048
  10. OXYCODONE HYDROCHLORIDE [Concomitant]
     Active Substance: OXYCODONE HYDROCHLORIDE
  11. OXYCODONE HYDROCHLORIDE [Concomitant]
     Active Substance: OXYCODONE HYDROCHLORIDE
  12. BILASTINE [Concomitant]
     Active Substance: BILASTINE
     Indication: Prophylaxis
     Route: 048
     Dates: start: 2021, end: 202110
  13. BILASTINE [Concomitant]
     Active Substance: BILASTINE
  14. DOLIPRANE [Concomitant]
     Active Substance: ACETAMINOPHEN
     Indication: Prophylaxis
     Route: 048
     Dates: start: 2020
  15. DOLIPRANE [Concomitant]
     Active Substance: ACETAMINOPHEN
  16. DOLIPRANE [Concomitant]
     Active Substance: ACETAMINOPHEN
  17. PHLOROGLUCINOL [Concomitant]
     Active Substance: PHLOROGLUCINOL
     Indication: Vomiting
     Route: 048
     Dates: start: 202012
  18. PHLOROGLUCINOL [Concomitant]
     Active Substance: PHLOROGLUCINOL
     Indication: Diarrhoea
  19. PHLOROGLUCINOL [Concomitant]
     Active Substance: PHLOROGLUCINOL
     Indication: Nausea
  20. APIXABAN [Concomitant]
     Active Substance: APIXABAN
     Indication: Product used for unknown indication
     Route: 048
     Dates: start: 202009, end: 20210203
  21. METEOSPASMYL (ALVERINE CITRATE\DIMETHICONE) [Concomitant]
     Active Substance: ALVERINE CITRATE\DIMETHICONE
     Indication: Nausea
     Dosage: 1 DF- ALVERINE CITRATE 60 MG + SIMETICONE 300 MG
     Route: 048
     Dates: start: 20201207
  22. METEOSPASMYL (ALVERINE CITRATE\DIMETHICONE) [Concomitant]
     Active Substance: ALVERINE CITRATE\DIMETHICONE
     Indication: Vomiting
  23. METEOSPASMYL (ALVERINE CITRATE\DIMETHICONE) [Concomitant]
     Active Substance: ALVERINE CITRATE\DIMETHICONE
     Indication: Diarrhoea
  24. SMECTA [Concomitant]
     Active Substance: MONTMORILLONITE
     Indication: Prophylaxis
     Dosage: 1 DF- 6 UNITS NOS
     Route: 048
     Dates: start: 20201207
  25. MINERAL OIL [Concomitant]
     Active Substance: MINERAL OIL
     Indication: Product used for unknown indication
     Route: 048
     Dates: start: 20201008

REACTIONS (1)
  - Enterocutaneous fistula [Recovered/Resolved]

NARRATIVE: CASE EVENT DATE: 20210126
